FAERS Safety Report 4990253-3 (Version None)
Quarter: 2006Q2

REPORT INFORMATION
  Report Type: 
  Country: None (occurrence: None)
  Receive Date: 20060503
  Receipt Date: 20060406
  Transmission Date: 20061013
  Serious: Yes (Hospitalization)
  Sender: FDA-Public Use
  Company Number: US-GLAXOSMITHKLINE-A0600818A

PATIENT

DRUGS (9)
  1. ROSIGLITAZONE [Suspect]
     Indication: DIABETES MELLITUS NON-INSULIN-DEPENDENT
     Dosage: 4MG PER DAY
     Route: 048
     Dates: start: 20060203
  2. HUMULIN 70/30 [Concomitant]
  3. METFORMIN [Concomitant]
  4. NISOLDIPINE [Concomitant]
  5. TRIAMTERENE AND HYDROCHLOROTHIAZIDE [Concomitant]
  6. METOPROLOL SUCCINATE [Concomitant]
  7. ASPIRIN [Concomitant]
  8. LISINOPRIL [Concomitant]
  9. SIMVASTATIN [Concomitant]

REACTIONS (3)
  - ACUTE CORONARY SYNDROME [None]
  - ACUTE MYOCARDIAL INFARCTION [None]
  - CHEST PAIN [None]
